FAERS Safety Report 7194483-4 (Version None)
Quarter: 2010Q4

REPORT INFORMATION
  Report Type: 
  Country: None (occurrence: None)
  Receive Date: 20101223
  Receipt Date: 20101216
  Transmission Date: 20110411
  Serious: Yes (Hospitalization)
  Sender: FDA-Public Use
  Company Number: CHPA2010US19155

PATIENT
  Age: 45 Year
  Sex: Male

DRUGS (1)
  1. MAALOX TOTAL RELIEF (NCH) [Suspect]
     Indication: ABDOMINAL DISCOMFORT
     Dosage: UNK, BID
     Route: 048
     Dates: start: 20101215, end: 20101215

REACTIONS (3)
  - DRUG INEFFECTIVE [None]
  - DRUG LABEL CONFUSION [None]
  - VOMITING [None]
